FAERS Safety Report 4644053-4 (Version None)
Quarter: 2005Q2

REPORT INFORMATION
  Report Type: 
  Country: None (occurrence: None)
  Receive Date: 20050425
  Receipt Date: 20030512
  Transmission Date: 20051028
  Serious: Yes (Other)
  Sender: FDA-Public Use
  Company Number: PHFR2003GB05122

PATIENT
  Age: 85 Year

DRUGS (1)
  1. GLEEVEC [Suspect]

REACTIONS (1)
  - ANAPHYLACTIC REACTION [None]
